FAERS Safety Report 8121893-0 (Version None)
Quarter: 2012Q1

REPORT INFORMATION
  Report Type: 
  Country: None (occurrence: None)
  Receive Date: 20120208
  Receipt Date: 20120127
  Transmission Date: 20120608
  Serious: Yes (Death, Hospitalization)
  Sender: FDA-Public Use
  Company Number: CA-ELI_LILLY_AND_COMPANY-CA201111001327

PATIENT
  Age: 65 Year
  Sex: Female

DRUGS (10)
  1. ONDANSETRON [Concomitant]
  2. HYDROXYCHLOROQUINE SULFATE [Concomitant]
  3. FOLIC ACID [Concomitant]
  4. VITAMINS NOS [Concomitant]
  5. AMITRIPTYLINE HCL [Concomitant]
  6. FORTEO [Suspect]
     Indication: OSTEOPOROSIS
     Dosage: 20 UG, QD
     Route: 058
     Dates: start: 20110111, end: 20110601
  7. PIPERACILLIN AND TAZOBACTAM [Concomitant]
  8. PREDNISONE [Concomitant]
  9. VANCOMYCIN [Concomitant]
  10. MULTI-VITAMIN [Concomitant]

REACTIONS (5)
  - INTESTINAL OBSTRUCTION [None]
  - ADENOCARCINOMA [None]
  - CARDIAC FAILURE CONGESTIVE [None]
  - PNEUMONIA [None]
  - SEPSIS [None]
